FAERS Safety Report 8471553-1 (Version None)
Quarter: 2012Q2

REPORT INFORMATION
  Report Type: 
  Country: None (occurrence: None)
  Receive Date: 20120323
  Receipt Date: 20110929
  Transmission Date: 20120825
  Serious: Yes (Other)
  Sender: FDA-Public Use
  Company Number: 163-21880-11100121

PATIENT
  Age: 67 Year
  Sex: Male
  Weight: 70.3 kg

DRUGS (3)
  1. CIPRO [Concomitant]
  2. REVLIMID [Suspect]
     Indication: MULTIPLE MYELOMA
     Dosage: 10 MG, 1 IN 1 D, PO
     Route: 048
     Dates: start: 20110802
  3. FLAGYL [Concomitant]

REACTIONS (2)
  - SINUSITIS [None]
  - DIVERTICULITIS [None]
